FAERS Safety Report 7431901-8 (Version None)
Quarter: 2011Q2

REPORT INFORMATION
  Report Type: 
  Country: None (occurrence: None)
  Receive Date: 20110419
  Receipt Date: 20110419
  Transmission Date: 20111010
  Serious: Yes (Hospitalization)
  Sender: FDA-Public Use
  Company Number: None

PATIENT
  Sex: Female
  Weight: 14.6 kg

DRUGS (2)
  1. THIOTEPA [Suspect]
     Dosage: 280 MG
     Dates: end: 20110330
  2. CARBOPLATIN [Suspect]
     Dosage: 480 MG
     Dates: end: 20110330

REACTIONS (12)
  - PYREXIA [None]
  - UNRESPONSIVE TO STIMULI [None]
  - IRRITABILITY [None]
  - TACHYPNOEA [None]
  - VOMITING [None]
  - HYPOKALAEMIA [None]
  - CSF CULTURE POSITIVE [None]
  - NEUTROPENIA [None]
  - BLOOD ELECTROLYTES ABNORMAL [None]
  - DIARRHOEA [None]
  - HYDROCEPHALUS [None]
  - STAPHYLOCOCCAL INFECTION [None]
